FAERS Safety Report 7430822-4 (Version None)
Quarter: 2011Q2

REPORT INFORMATION
  Report Type: 
  Country: None (occurrence: None)
  Receive Date: 20110421
  Receipt Date: 20110415
  Transmission Date: 20111010
  Serious: Yes (Hospitalization)
  Sender: FDA-Public Use
  Company Number: BR-US-EMD SERONO, INC.-7054390

PATIENT
  Sex: Female

DRUGS (7)
  1. REBIF [Suspect]
     Indication: RELAPSING-REMITTING MULTIPLE SCLEROSIS
     Dates: start: 20050603
  2. DORFLEX [Concomitant]
  3. MESULID [Concomitant]
  4. METICORTEN [Concomitant]
  5. BENERVA [Concomitant]
  6. OSTEONUTRI [Concomitant]
  7. PARACETAMOL [Concomitant]

REACTIONS (15)
  - MEMORY IMPAIRMENT [None]
  - INFLUENZA [None]
  - DYSPNOEA [None]
  - FATIGUE [None]
  - STRESS [None]
  - FALL [None]
  - CENTRAL NERVOUS SYSTEM LESION [None]
  - NASOPHARYNGITIS [None]
  - SLEEP DISORDER [None]
  - LUNG DISORDER [None]
  - HYPOAESTHESIA [None]
  - TOOTH INJURY [None]
  - INFLUENZA LIKE ILLNESS [None]
  - HYPOAESTHESIA ORAL [None]
  - MUSCULAR WEAKNESS [None]
